FAERS Safety Report 7935320-7 (Version None)
Quarter: 2011Q4

REPORT INFORMATION
  Report Type: 
  Country: None (occurrence: None)
  Receive Date: 20111122
  Receipt Date: 20111115
  Transmission Date: 20120403
  Serious: Yes (Other)
  Sender: FDA-Public Use
  Company Number: US-BAYER-2011-111143

PATIENT
  Age: 55 Year
  Sex: Female
  Weight: 54 kg

DRUGS (1)
  1. CITRACAL MAXIMUM [Suspect]
     Dosage: 2 DF, BID
     Route: 048
     Dates: start: 20111109

REACTIONS (2)
  - CHOKING [None]
  - REGURGITATION [None]
